FAERS Safety Report 13938607 (Version 1)
Quarter: 2017Q3

REPORT INFORMATION
  Report Type: Spontaneous
  Country: US (occurrence: None)
  Receive Date: 20170905
  Receipt Date: 20170905
  Transmission Date: 20171127
  Serious: Yes (Death)
  Sender: FDA-Public Use
  Company Number: None

PATIENT
  Age: 62 Year
  Sex: Male

DRUGS (5)
  1. OXYCODONE [Concomitant]
     Active Substance: OXYCODONE
  2. ENOXAPARIN [Concomitant]
     Active Substance: ENOXAPARIN
  3. GRANIX [Suspect]
     Active Substance: TBO-FILGRASTIM
     Indication: CARCINOID TUMOUR
     Dosage: FREQUENCY - DAILY FOR 5 DAYS
     Route: 058
     Dates: start: 20170725, end: 201708
  4. MULTI VITE [Concomitant]
  5. CEPHALEXIN. [Concomitant]
     Active Substance: CEPHALEXIN

REACTIONS (1)
  - Disease complication [None]

NARRATIVE: CASE EVENT DATE: 20170831
